FAERS Safety Report 7116859-3 (Version None)
Quarter: 2010Q4

REPORT INFORMATION
  Report Type: 
  Country: None (occurrence: None)
  Receive Date: 20101122
  Receipt Date: 20101109
  Transmission Date: 20110411
  Serious: Yes (Hospitalization)
  Sender: FDA-Public Use
  Company Number: RU-MERCK-1011USA01473

PATIENT
  Age: 34 Year
  Sex: Male

DRUGS (1)
  1. CANCIDAS [Suspect]
     Indication: FEBRILE NEUTROPENIA
     Route: 065
     Dates: start: 20100922, end: 20101012

REACTIONS (4)
  - CANDIDIASIS [None]
  - DRUG INEFFECTIVE [None]
  - FUNGAL INFECTION [None]
  - PNEUMONIA FUNGAL [None]
